FAERS Safety Report 4680145-1 (Version None)
Quarter: 2005Q2

REPORT INFORMATION
  Report Type: 
  Country: None (occurrence: None)
  Receive Date: 20050531
  Receipt Date: 20050519
  Transmission Date: 20051028
  Serious: Yes (Death, Hospitalization)
  Sender: FDA-Public Use
  Company Number: HQWYE793919MAY05

PATIENT
  Age: 53 Year
  Sex: Male

DRUGS (7)
  1. AMIODARONE HCL [Suspect]
     Indication: ATRIAL FIBRILLATION
     Dosage: 200 MG 1X PER 1 DAY ORAL
     Route: 048
     Dates: end: 20050301
  2. WARFARIN SODIUM [Concomitant]
  3. SALBUTAMOL (SALBUTAMOL) [Concomitant]
  4. BECONASE [Concomitant]
  5. FUROSEMIDE [Concomitant]
  6. PERINDOPRIL (PERINDOPRIL) [Concomitant]
  7. AMOXICILLIN [Concomitant]

REACTIONS (4)
  - ALVEOLITIS [None]
  - BRONCHOPNEUMONIA [None]
  - MYOCARDIAL ISCHAEMIA [None]
  - PULMONARY FIBROSIS [None]
